FAERS Safety Report 23033835 (Version 1)
Quarter: 2023Q4

REPORT INFORMATION
  Report Type: Spontaneous
  Country: FR (occurrence: FR)
  Receive Date: 20231005
  Receipt Date: 20231005
  Transmission Date: 20240110
  Serious: Yes (Death)
  Sender: FDA-Public Use
  Company Number: None

PATIENT
  Age: 78 Year
  Sex: Male
  Weight: 81 kg

DRUGS (2)
  1. OXALIPLATIN [Suspect]
     Active Substance: OXALIPLATIN
     Indication: Metastatic gastric cancer
     Dosage: 8 CYCLES
     Route: 042
     Dates: start: 20230324, end: 20230818
  2. OPDIVO [Suspect]
     Active Substance: NIVOLUMAB
     Indication: Metastatic gastric cancer
     Dosage: 5 CYCLES
     Route: 042
     Dates: start: 20230324, end: 20230623

REACTIONS (1)
  - Interstitial lung disease [Fatal]

NARRATIVE: CASE EVENT DATE: 20230701
